FAERS Safety Report 6366522-1 (Version None)
Quarter: 2009Q3

REPORT INFORMATION
  Report Type: 
  Country: None (occurrence: None)
  Receive Date: 20090921
  Receipt Date: 20090914
  Transmission Date: 20100115
  Serious: Yes (Disabling, Other)
  Sender: FDA-Public Use
  Company Number: US-BAYER-200932918NA

PATIENT
  Sex: Female

DRUGS (2)
  1. CIPRO [Suspect]
     Indication: DRUG USE FOR UNKNOWN INDICATION
  2. CIPROFLAXACIN [Suspect]
     Indication: DRUG USE FOR UNKNOWN INDICATION

REACTIONS (8)
  - ANXIETY [None]
  - DEFORMITY [None]
  - DIPLEGIA [None]
  - PAIN [None]
  - POSTURE ABNORMAL [None]
  - ROTATOR CUFF SYNDROME [None]
  - TENDON INJURY [None]
  - WOUND DEHISCENCE [None]
